FAERS Safety Report 8759320 (Version 1)
Quarter: 2012Q4

REPORT INFORMATION
  Report Type: 
  Country: DK (occurrence: DK)
  Receive Date: 20120829
  Receipt Date: 20120829
  Transmission Date: 20130627
  Serious: Yes (Hospitalization, Other)
  Sender: FDA-Public Use
  Company Number: DK-ROXANE LABORATORIES, INC.-2012-RO-01745RO

PATIENT
  Age: 62 Year
  Sex: Female

DRUGS (1)
  1. LITHIUM CARBONATE [Suspect]
     Dosage: 450 mg

REACTIONS (2)
  - Toxicity to various agents [Recovered/Resolved]
  - Medication error [Recovered/Resolved]
